FAERS Safety Report 9098679 (Version 1)
Quarter: 2013Q1

REPORT INFORMATION
  Report Type: Spontaneous
  Country: US (occurrence: US)
  Receive Date: 20130213
  Receipt Date: 20130213
  Transmission Date: 20140127
  Serious: No
  Sender: FDA-Public Use
  Company Number: US-ALLERGAN-1217793US

PATIENT
  Sex: Male

DRUGS (4)
  1. LASTACAFT [Suspect]
     Indication: EYE ALLERGY
     Dosage: 1 GTT OU
     Route: 047
     Dates: start: 201210, end: 201210
  2. COZAAR [Concomitant]
     Indication: HYPERTENSION
     Dosage: UNK
  3. ASA [Concomitant]
     Indication: PRODUCT USED FOR UNKNOWN INDICATION
     Dosage: UNK
  4. OMEGA 3 [Concomitant]
     Indication: PRODUCT USED FOR UNKNOWN INDICATION
     Dosage: UNK

REACTIONS (6)
  - Eye complication associated with device [Recovered/Resolved]
  - Eye infection [Unknown]
  - Ocular hyperaemia [Recovered/Resolved]
  - Eye pain [Recovered/Resolved]
  - Drug hypersensitivity [Unknown]
  - Wrong technique in drug usage process [Unknown]
